FAERS Safety Report 4784983-6 (Version None)
Quarter: 2005Q3

REPORT INFORMATION
  Report Type: 
  Country: None (occurrence: None)
  Receive Date: 20050928
  Receipt Date: 20050913
  Transmission Date: 20060218
  Serious: Yes (Other)
  Sender: FDA-Public Use
  Company Number: C-05-0042

PATIENT
  Age: 71 Year
  Sex: Female
  Weight: 72.1219 kg

DRUGS (4)
  1. NYSTATIN [Suspect]
     Indication: PEMPHIGOID
     Dosage: TAKE ONE TSP ORALLY FOUR TIMES A DAY
     Dates: start: 20050615, end: 20050913
  2. SEREVENT [Concomitant]
  3. AZMACORT [Concomitant]
  4. PETO BISMOL [Concomitant]

REACTIONS (3)
  - DYSGEUSIA [None]
  - TONGUE BLACK HAIRY [None]
  - TONGUE DISCOLOURATION [None]
